FAERS Safety Report 13718796 (Version 2)
Quarter: 2017Q3

REPORT INFORMATION
  Report Type: Report from Study
  Country: US (occurrence: US)
  Receive Date: 20170705
  Receipt Date: 20170713
  Transmission Date: 20171127
  Serious: Yes (Death, Life-Threatening)
  Sender: FDA-Public Use
  Company Number: US-ACTELION-A-US2017-151917

PATIENT
  Age: 73 Year
  Sex: Male
  Weight: 62.59 kg

DRUGS (2)
  1. VELETRI [Suspect]
     Active Substance: EPOPROSTENOL
     Indication: PULMONARY ARTERIAL HYPERTENSION
     Dosage: 25 NG/KG, PER MIN
     Route: 042
     Dates: start: 20150119, end: 20170625
  2. SILDENAFIL CITRATE. [Concomitant]
     Active Substance: SILDENAFIL CITRATE
     Dosage: 20 MG, TID

REACTIONS (6)
  - Respiratory failure [Fatal]
  - Pneumonia [Recovering/Resolving]
  - Oxygen therapy [Unknown]
  - Dyspnoea [Unknown]
  - Influenza [Recovered/Resolved]
  - Fluid retention [Recovered/Resolved]
